FAERS Safety Report 5678513-4 (Version None)
Quarter: 2008Q1

REPORT INFORMATION
  Report Type: 
  Country: None (occurrence: None)
  Receive Date: 20080325
  Receipt Date: 20071204
  Transmission Date: 20080703
  Serious: No
  Sender: FDA-Public Use
  Company Number: US-BAYER-200716015NA

PATIENT
  Age: 29 Year
  Sex: Female
  Weight: 64 kg

DRUGS (1)
  1. MIRENA [Suspect]
     Indication: CONTRACEPTION
     Route: 015
     Dates: start: 20041001

REACTIONS (4)
  - BREAST PAIN [None]
  - BREAST TENDERNESS [None]
  - HYPOMENORRHOEA [None]
  - MOOD ALTERED [None]
